FAERS Safety Report 15719860 (Version 6)
Quarter: 2020Q1

REPORT INFORMATION
  Report Type: Spontaneous
  Country: US (occurrence: US)
  Receive Date: 20181213
  Receipt Date: 20200131
  Transmission Date: 20200409
  Serious: Yes (Other)
  Sender: FDA-Public Use
  Company Number: US-PFIZER INC-2018511815

PATIENT
  Age: 35 Year
  Sex: Male

DRUGS (1)
  1. DILANTIN-125 [Suspect]
     Active Substance: PHENYTOIN
     Indication: EPILEPSY
     Dosage: 13 ML, DAILY (TAKE 7 ML IN THE MORNING AND 6 ML AT NIGHT)

REACTIONS (5)
  - Seizure [Unknown]
  - Mutism [Unknown]
  - Product prescribing error [Unknown]
  - Loss of personal independence in daily activities [Unknown]
  - Hypokinesia [Unknown]
